FAERS Safety Report 25994098 (Version 1)
Quarter: 2025Q4

REPORT INFORMATION
  Report Type: Spontaneous
  Country: US (occurrence: US)
  Receive Date: 20251104
  Receipt Date: 20251104
  Transmission Date: 20260117
  Serious: No
  Sender: NOBELPHARMA
  Company Number: US-NPA-2025-AER-01830

PATIENT
  Sex: Female

DRUGS (4)
  1. HYFTOR [Suspect]
     Active Substance: SIROLIMUS
     Indication: Tuberous sclerosis complex
     Dates: start: 20250715
  2. EVEROLIMUS [Concomitant]
     Active Substance: EVEROLIMUS
  3. LAMOTRIGINE [Concomitant]
     Active Substance: LAMOTRIGINE
  4. LAMOTRIGINE [Concomitant]
     Active Substance: LAMOTRIGINE

REACTIONS (2)
  - Nausea [Unknown]
  - Photosensitivity reaction [Unknown]
